FAERS Safety Report 4307446-0 (Version None)
Quarter: 2004Q1

REPORT INFORMATION
  Report Type: 
  Country: None (occurrence: None)
  Receive Date: 20040226
  Receipt Date: 20040211
  Transmission Date: 20041129
  Serious: Yes (Other)
  Sender: FDA-Public Use
  Company Number: US066790

PATIENT
  Age: 13 Year
  Sex: Female

DRUGS (2)
  1. ETANERCEPT [Suspect]
     Indication: JUVENILE ARTHRITIS
     Dosage: 12.5 MG, 2 IN 1 WEEKS
  2. METHOTREXATE [Concomitant]

REACTIONS (5)
  - ANKYLOSING SPONDYLITIS [None]
  - BONE DISORDER [None]
  - PARONYCHIA [None]
  - SPINAL DISORDER [None]
  - STAPHYLOCOCCAL INFECTION [None]
